FAERS Safety Report 5221150-6 (Version None)
Quarter: 2007Q1

REPORT INFORMATION
  Report Type: 
  Country: None (occurrence: None)
  Receive Date: 20070126
  Receipt Date: 20070115
  Transmission Date: 20070707
  Serious: Yes (Other)
  Sender: FDA-Public Use
  Company Number: CA-ROCHE-478800

PATIENT
  Age: 40 Year
  Sex: Female
  Weight: 75.3 kg

DRUGS (1)
  1. TAMIFLU [Suspect]
     Indication: DRUG USE FOR UNKNOWN INDICATION
     Route: 048
     Dates: start: 20061117, end: 20061119

REACTIONS (2)
  - PRURITUS [None]
  - RASH [None]
